FAERS Safety Report 18599885 (Version 1)
Quarter: 2020Q4

REPORT INFORMATION
  Report Type: Spontaneous
  Country: US (occurrence: US)
  Receive Date: 20201209
  Receipt Date: 20201209
  Transmission Date: 20210114
  Serious: Yes (Other)
  Sender: FDA-Public Use
  Company Number: None

PATIENT
  Age: 74 Year
  Sex: Female
  Weight: 58.97 kg

DRUGS (19)
  1. ALBUTEROL NEBULIZER [Concomitant]
     Active Substance: ALBUTEROL
  2. TURNMERIC [Concomitant]
  3. VITAMIN B2 [Concomitant]
     Active Substance: RIBOFLAVIN
  4. CACLIUM [Concomitant]
  5. AIMOVIG [Suspect]
     Active Substance: ERENUMAB-AOOE
     Indication: MIGRAINE
     Dosage: ?          QUANTITY:1 INJECTION;OTHER ROUTE:INJECTION INTO THIGH?
     Dates: start: 20181006, end: 20190806
  6. FLONASE [Concomitant]
     Active Substance: FLUTICASONE PROPIONATE
  7. CINNAMON. [Concomitant]
     Active Substance: CINNAMON
  8. OMEGA 3 [Concomitant]
     Active Substance: OMEGA-3 FATTY ACIDS
  9. FENOFIBRATE. [Concomitant]
     Active Substance: FENOFIBRATE
  10. VITAMIN D [Concomitant]
     Active Substance: VITAMIN D NOS
  11. COENZYME Q10 [Concomitant]
     Active Substance: DIETARY SUPPLEMENT\UBIDECARENONE
  12. MUCINEX [Concomitant]
     Active Substance: GUAIFENESIN
  13. GINGER. [Concomitant]
     Active Substance: GINGER
  14. MAGNESIUM [Concomitant]
     Active Substance: MAGNESIUM
  15. GARLIC. [Concomitant]
     Active Substance: GARLIC
  16. ALBUTEROL INHALER [Concomitant]
     Active Substance: ALBUTEROL
  17. BIOTIN [Concomitant]
     Active Substance: BIOTIN
  18. VITAMIN E [Concomitant]
     Active Substance: .ALPHA.-TOCOPHEROL
  19. MULTIVITAMIN [Concomitant]
     Active Substance: VITAMINS

REACTIONS (5)
  - Muscle atrophy [None]
  - Injection site erythema [None]
  - Myalgia [None]
  - Urticaria [None]
  - Arrhythmia [None]

NARRATIVE: CASE EVENT DATE: 20190201
